FAERS Safety Report 13691619 (Version 1)
Quarter: 2017Q2

REPORT INFORMATION
  Report Type: Spontaneous
  Country: GB (occurrence: GB)
  Receive Date: 20170626
  Receipt Date: 20170626
  Transmission Date: 20170830
  Serious: Yes (Other)
  Sender: FDA-Public Use
  Company Number: GB-TEVA-779427ACC

PATIENT
  Age: 58 Year
  Sex: Male
  Weight: 98.42 kg

DRUGS (2)
  1. AMLODIPINE [Suspect]
     Active Substance: AMLODIPINE BESYLATE
     Indication: HYPERTENSION
     Route: 048
     Dates: start: 20151128, end: 20160927
  2. FOLPIK XL [Suspect]
     Active Substance: FELODIPINE
     Indication: HYPERTENSION
     Dosage: 5 MG - 10 MG
     Route: 048
     Dates: start: 20160928, end: 20170528

REACTIONS (3)
  - Fatigue [Recovered/Resolved]
  - Arthralgia [Recovered/Resolved]
  - Sleep disorder [Recovered/Resolved]
